FAERS Safety Report 5809140-3 (Version None)
Quarter: 2008Q3

REPORT INFORMATION
  Report Type: 
  Country: None (occurrence: None)
  Receive Date: 20080714
  Receipt Date: 20080702
  Transmission Date: 20090109
  Serious: Yes (Other)
  Sender: FDA-Public Use
  Company Number: US-PFIZER INC-2008042009

PATIENT
  Sex: Female
  Weight: 61.7 kg

DRUGS (5)
  1. CHANTIX [Suspect]
     Indication: SMOKING CESSATION THERAPY
  2. PRAVASTATIN [Concomitant]
  3. DOXEPIN HCL [Concomitant]
  4. TRAMADOL HCL [Concomitant]
  5. ESTRADIOL [Concomitant]

REACTIONS (6)
  - DEPRESSION [None]
  - FATIGUE [None]
  - ILL-DEFINED DISORDER [None]
  - NAUSEA [None]
  - RESTLESS LEGS SYNDROME [None]
  - VOMITING [None]
